FAERS Safety Report 7832199-9 (Version None)
Quarter: 2011Q4

REPORT INFORMATION
  Report Type: 
  Country: None (occurrence: None)
  Receive Date: 20111022
  Receipt Date: 20100902
  Transmission Date: 20120403
  Serious: No
  Sender: FDA-Public Use
  Company Number: US-BAYER-201032967NA

PATIENT
  Age: 57 Year
  Sex: Female
  Weight: 71.202 kg

DRUGS (10)
  1. PREDNISONE [Concomitant]
     Dosage: 50 MG AS PRE-MEDICATION
     Route: 048
     Dates: start: 20100902
  2. SIMVASTATIN [Concomitant]
  3. PREDNISONE [Concomitant]
     Dosage: 50 MG AS PRE-MEDICATION
     Route: 048
     Dates: start: 20100901
  4. COLCHICINE [Concomitant]
  5. CALCIUM CARBONATE [Concomitant]
  6. PREDNISONE [Concomitant]
     Dosage: 50 MG AS PRE-MEDICATION
     Route: 048
     Dates: start: 20100901
  7. ATROPINE [Concomitant]
  8. ULTRAVIST (PHARMACY BULK) [Suspect]
     Indication: COMPUTERISED TOMOGRAM
     Dosage: 106 ML, RT AC@ 22DEGREE CELCIUS, POWER INJECTOR @1.5ML/SEC
     Route: 042
     Dates: start: 20100902, end: 20100902
  9. XYZAL [Concomitant]
  10. BOVIVA [Concomitant]

REACTIONS (1)
  - OROPHARYNGEAL DISCOMFORT [None]
